FAERS Safety Report 18958519 (Version 4)
Quarter: 2021Q2

REPORT INFORMATION
  Report Type: Spontaneous
  Country: US (occurrence: US)
  Receive Date: 20210302
  Receipt Date: 20210611
  Transmission Date: 20210717
  Serious: No
  Sender: FDA-Public Use
  Company Number: US-SA-2021SA066743

PATIENT
  Age: 62 Year
  Sex: Female

DRUGS (1)
  1. DUPIXENT [Suspect]
     Active Substance: DUPILUMAB
     Indication: ASTHMA
     Dosage: 300 MG, QOW
     Route: 058
     Dates: start: 20201224

REACTIONS (9)
  - Fatigue [Unknown]
  - Tinnitus [Unknown]
  - Poor quality sleep [Unknown]
  - Arthralgia [Unknown]
  - Back pain [Unknown]
  - Product use issue [Unknown]
  - Insomnia [Unknown]
  - Hypoacusis [Unknown]
  - Night sweats [Unknown]

NARRATIVE: CASE EVENT DATE: 2021
